FAERS Safety Report 8977882 (Version 8)
Quarter: 2013Q4

REPORT INFORMATION
  Report Type: Report from Study
  Country: US (occurrence: US)
  Receive Date: 20121219
  Receipt Date: 20131112
  Transmission Date: 20140711
  Serious: Yes (Death, Life-Threatening, Hospitalization)
  Sender: FDA-Public Use
  Company Number: US-SANOFI-AVENTIS-200416889US

PATIENT
  Age: 64 Year
  Sex: Female
  Weight: 68.1 kg

DRUGS (10)
  1. DOCETAXEL [Suspect]
     Indication: BREAST CANCER
     Route: 042
     Dates: start: 20020401, end: 20020826
  2. DOXORUBICIN [Suspect]
     Indication: BREAST CANCER
     Route: 042
     Dates: start: 20020401, end: 20020826
  3. CYCLOPHOSPHAMIDE [Suspect]
     Indication: BREAST CANCER
     Route: 042
     Dates: start: 20020401, end: 20020826
  4. ENALAPRIL [Concomitant]
     Indication: CARDIOMYOPATHY
     Dosage: DOSE AS USED: UNK MG
     Route: 048
     Dates: start: 20040808
  5. LASIX [Concomitant]
     Indication: PLEURAL EFFUSION
     Dosage: DOSE AS USED: UNK MG
     Route: 048
     Dates: start: 2004
  6. EFFEXOR [Concomitant]
     Indication: DEPRESSION
     Route: 048
     Dates: start: 2002
  7. METOPROLOL [Concomitant]
     Indication: HYPERTENSION
     Route: 048
     Dates: start: 2002
  8. PREVACID [Concomitant]
     Indication: GASTROOESOPHAGEAL REFLUX DISEASE
     Route: 048
     Dates: start: 2002
  9. ATIVAN [Concomitant]
     Indication: ANXIETY
     Dosage: DOSE AS USED: UNK MG
     Route: 048
     Dates: start: 2002
  10. PREDNISONE [Concomitant]
     Route: 065

REACTIONS (3)
  - Cardiac failure congestive [Fatal]
  - Cardiomyopathy [Recovered/Resolved with Sequelae]
  - Chest pain [Recovered/Resolved with Sequelae]
